FAERS Safety Report 10707003 (Version 2)
Quarter: 2015Q1

REPORT INFORMATION
  Report Type: Spontaneous
  Country: US (occurrence: US)
  Receive Date: 20150113
  Receipt Date: 20150302
  Transmission Date: 20150721
  Serious: Yes (Other)
  Sender: FDA-Public Use
  Company Number: US-BAYER-2015-000668

PATIENT
  Age: 71 Year
  Sex: Male

DRUGS (11)
  1. STAXYN [Suspect]
     Active Substance: VARDENAFIL HYDROCHLORIDE TRIHYDRATE
     Indication: ERECTILE DYSFUNCTION
     Dosage: UNK
  2. STAXYN [Suspect]
     Active Substance: VARDENAFIL HYDROCHLORIDE TRIHYDRATE
     Indication: ERECTILE DYSFUNCTION
     Dosage: 10 MG, ONCE A WEEK/TWICE A WEEK
     Route: 048
     Dates: start: 201409, end: 20141229
  3. TAMSULOSIN [Concomitant]
     Active Substance: TAMSULOSIN
  4. LISINOPRIL. [Concomitant]
     Active Substance: LISINOPRIL
  5. FLONASE [Concomitant]
     Active Substance: FLUTICASONE PROPIONATE
  6. PROTONIX [Concomitant]
     Active Substance: PANTOPRAZOLE SODIUM
  7. PLAVIX [Concomitant]
     Active Substance: CLOPIDOGREL BISULFATE
  8. AZOPT [Concomitant]
     Active Substance: BRINZOLAMIDE
  9. TOPROL XL [Concomitant]
     Active Substance: METOPROLOL SUCCINATE
  10. NORVASC [Concomitant]
     Active Substance: AMLODIPINE BESYLATE
  11. LIPITOR [Concomitant]
     Active Substance: ATORVASTATIN CALCIUM

REACTIONS (3)
  - Hypertension [Recovered/Resolved]
  - Wrong technique in drug usage process [None]
  - Blood pressure increased [None]

NARRATIVE: CASE EVENT DATE: 20141229
